FAERS Safety Report 4817216-2 (Version None)
Quarter: 2005Q4

REPORT INFORMATION
  Report Type: 
  Country: None (occurrence: None)
  Receive Date: 20051101
  Receipt Date: 20051021
  Transmission Date: 20060501
  Serious: Yes (Other)
  Sender: FDA-Public Use
  Company Number: FR-JNJFOC-20051005694

PATIENT
  Age: 90 Year
  Sex: Female

DRUGS (3)
  1. TOPALGIC [Suspect]
     Indication: ARTHRALGIA
     Route: 048
  2. APROVEL [Concomitant]
     Indication: HYPERTENSION
     Route: 048
  3. SLEEPING TABLET [Concomitant]
     Indication: SLEEP DISORDER
     Route: 065

REACTIONS (3)
  - CONFUSIONAL STATE [None]
  - FALL [None]
  - HYPONATRAEMIA [None]
